FAERS Safety Report 21182633 (Version 1)
Quarter: 2022Q3

REPORT INFORMATION
  Report Type: Spontaneous
  Country: US (occurrence: US)
  Receive Date: 20220808
  Receipt Date: 20220808
  Transmission Date: 20221027
  Serious: Yes (Hospitalization)
  Sender: FDA-Public Use
  Company Number: US-BIOVITRUM-2022US09258

PATIENT
  Sex: Female

DRUGS (9)
  1. SYNAGIS [Suspect]
     Active Substance: PALIVIZUMAB
     Indication: Premature baby
  2. VITAMIN D2 10 MCG TABLET [Concomitant]
  3. SIMETHICONE 125 MG CAPSULE [Concomitant]
  4. ASPIRIN 81 MG TAB CHEW [Concomitant]
  5. ERYTHROMYCIN-BENZOYL PEROXIDE [Concomitant]
     Active Substance: BENZOYL PEROXIDE\ERYTHROMYCIN
  6. SYNAGIS [Suspect]
     Active Substance: PALIVIZUMAB
     Indication: Ebstein^s anomaly
  7. SYNAGIS [Suspect]
     Active Substance: PALIVIZUMAB
     Indication: Gastrostomy
  8. LASIX 20 MG TABLET [Concomitant]
  9. SILDENAFIL CITRATE [Concomitant]
     Active Substance: SILDENAFIL CITRATE

REACTIONS (2)
  - Urinary tract infection [Unknown]
  - Oxygen saturation abnormal [Unknown]
